FAERS Safety Report 15549080 (Version 1)
Quarter: 2018Q4

REPORT INFORMATION
  Report Type: Spontaneous
  Country: US (occurrence: US)
  Receive Date: 20181025
  Receipt Date: 20181025
  Transmission Date: 20190205
  Serious: No
  Sender: FDA-Public Use
  Company Number: US-APOTEX-2017AP021505

PATIENT
  Sex: Female

DRUGS (3)
  1. MIDODRINE HYDROCHLORIDE. [Suspect]
     Active Substance: MIDODRINE HYDROCHLORIDE
     Dosage: 10 MG, TID
     Route: 065
  2. MIDODRINE HYDROCHLORIDE. [Suspect]
     Active Substance: MIDODRINE HYDROCHLORIDE
     Dosage: 2 DF OF THE 5MG
     Route: 065
  3. MIDODRINE HYDROCHLORIDE. [Suspect]
     Active Substance: MIDODRINE HYDROCHLORIDE
     Indication: BLOOD PRESSURE MANAGEMENT
     Dosage: 5 MG, TID
     Route: 065

REACTIONS (3)
  - Wrong technique in product usage process [Unknown]
  - Feeling abnormal [Unknown]
  - Drug ineffective [Unknown]
